FAERS Safety Report 25685691 (Version 1)
Quarter: 2025Q3

REPORT INFORMATION
  Report Type: Spontaneous
  Country: US (occurrence: US)
  Receive Date: 20250815
  Receipt Date: 20250815
  Transmission Date: 20251021
  Serious: Yes (Death, Other)
  Sender: INCYTE
  Company Number: US-EVENT-003931

PATIENT

DRUGS (2)
  1. MONJUVI [Suspect]
     Active Substance: TAFASITAMAB-CXIX
     Indication: Diffuse large B-cell lymphoma refractory
     Route: 065
  2. MONJUVI [Suspect]
     Active Substance: TAFASITAMAB-CXIX
     Route: 065

REACTIONS (1)
  - Death [Fatal]
